FAERS Safety Report 4343734-X (Version None)
Quarter: 2004Q2

REPORT INFORMATION
  Report Type: 
  Country: None (occurrence: None)
  Receive Date: 20040419
  Receipt Date: 20040408
  Transmission Date: 20050107
  Serious: Yes (Other)
  Sender: FDA-Public Use
  Company Number: US-JNJFOC-20040403128

PATIENT
  Age: 14 Year
  Sex: Male

DRUGS (3)
  1. CISAPRIDE (CISAPRIDE) UNSPECIFIED [Suspect]
  2. FLUCONAZOLE [Suspect]
  3. SEVOFLURANE [Suspect]

REACTIONS (3)
  - ANAESTHETIC COMPLICATION CARDIAC [None]
  - ELECTROCARDIOGRAM QT PROLONGED [None]
  - VENTRICULAR TACHYCARDIA [None]
